FAERS Safety Report 4505550-5 (Version None)
Quarter: 2004Q4

REPORT INFORMATION
  Report Type: 
  Country: None (occurrence: None)
  Receive Date: 20041119
  Receipt Date: 20040914
  Transmission Date: 20050328
  Serious: No
  Sender: FDA-Public Use
  Company Number: US-GLAXOSMITHKLINE-A0525597A

PATIENT
  Age: 38 Year
  Sex: Male

DRUGS (2)
  1. AVODART [Suspect]
     Indication: MALE PATTERN BALDNESS
     Dosage: .5MG PER DAY
     Route: 048
     Dates: start: 20030801, end: 20040913
  2. ALTACE [Concomitant]

REACTIONS (1)
  - HEADACHE [None]
